FAERS Safety Report 15582672 (Version 2)
Quarter: 2018Q4

REPORT INFORMATION
  Report Type: Report from Study
  Country: US (occurrence: US)
  Receive Date: 20181105
  Receipt Date: 20181121
  Transmission Date: 20190205
  Serious: Yes (Life-Threatening, Hospitalization)
  Sender: FDA-Public Use
  Company Number: US-ROCHE-2208383

PATIENT
  Age: 58 Year
  Sex: Female
  Weight: 86.3 kg

DRUGS (11)
  1. ATEZOLIZUMAB. [Suspect]
     Active Substance: ATEZOLIZUMAB
     Indication: BREAST CANCER METASTATIC
     Dosage: DATE OF MOST RECENT DOSE: 22/OCT/2018.
     Route: 042
     Dates: start: 20180907
  2. FENTANYL. [Concomitant]
     Active Substance: FENTANYL
     Indication: PAIN
     Dosage: 50 MCG/ML/HR
     Route: 065
     Dates: start: 20181103, end: 20181104
  3. LACTULOSE. [Concomitant]
     Active Substance: LACTULOSE
     Indication: CONSTIPATION
     Dosage: 20 GRAM/30ML
     Route: 065
     Dates: start: 20181030, end: 20181101
  4. CALCITONIN [Concomitant]
     Active Substance: CALCITONIN
     Dosage: CONTROLLED RELEASE TABLET
     Route: 065
  5. ZOFRAN [Concomitant]
     Active Substance: ONDANSETRON HYDROCHLORIDE
     Dosage: AS NEEDED
     Route: 065
  6. FLONASE [Concomitant]
     Active Substance: FLUTICASONE PROPIONATE
     Route: 045
  7. ZOFRAN [Concomitant]
     Active Substance: ONDANSETRON HYDROCHLORIDE
     Indication: NAUSEA
     Route: 065
     Dates: start: 20180607, end: 20181104
  8. MORPHINE [Concomitant]
     Active Substance: MORPHINE
     Indication: PAIN
     Dosage: 20 MG/ML
     Route: 048
     Dates: start: 20181101
  9. FLUVIRIN (UNITED STATES) [Concomitant]
     Dosage: 3/0.5ML
     Route: 065
     Dates: start: 2015, end: 2016
  10. LASIX [Concomitant]
     Active Substance: FUROSEMIDE
     Route: 065
  11. GABAPENTIN. [Concomitant]
     Active Substance: GABAPENTIN
     Indication: PAIN
     Dosage: 300 MG IN THE MORNING AND 900 MG IN THE EVENING
     Route: 065
     Dates: start: 20180611

REACTIONS (2)
  - Hepatic failure [Not Recovered/Not Resolved]
  - Hypercalcaemia [Not Recovered/Not Resolved]

NARRATIVE: CASE EVENT DATE: 20181027
